FAERS Safety Report 10418440 (Version 1)
Quarter: 2014Q3

REPORT INFORMATION
  Report Type: Spontaneous
  Country: US (occurrence: None)
  Receive Date: 20140828
  Receipt Date: 20140828
  Transmission Date: 20150326
  Serious: No
  Sender: FDA-Public Use
  Company Number: None

PATIENT
  Age: 72 Year
  Sex: Female
  Weight: 55.34 kg

DRUGS (1)
  1. LEVAQUIN [Suspect]
     Active Substance: LEVOFLOXACIN
     Indication: RESPIRATORY DISORDER
     Dosage: 1 PILL FOR 5 DAYS, ONCE DAILY, TAKEN BY MOUTH?
     Route: 048
     Dates: start: 20140814, end: 20140819

REACTIONS (2)
  - Joint swelling [None]
  - Pain in extremity [None]

NARRATIVE: CASE EVENT DATE: 20140814
